FAERS Safety Report 7958449-6 (Version None)
Quarter: 2011Q4

REPORT INFORMATION
  Report Type: 
  Country: None (occurrence: None)
  Receive Date: 20111205
  Receipt Date: 20111122
  Transmission Date: 20120403
  Serious: Yes (Other)
  Sender: FDA-Public Use
  Company Number: JP-ELI_LILLY_AND_COMPANY-JP201111006556

PATIENT
  Sex: Female

DRUGS (2)
  1. FORTEO [Suspect]
     Dosage: UNK
     Route: 058
     Dates: start: 20111107, end: 20111101
  2. NEXAVAR [Concomitant]

REACTIONS (3)
  - EPILEPSY [None]
  - FEELING ABNORMAL [None]
  - TRANSIENT ISCHAEMIC ATTACK [None]
